FAERS Safety Report 10049068 (Version 1)
Quarter: 2014Q1

REPORT INFORMATION
  Report Type: Spontaneous
  Country: US (occurrence: US)
  Receive Date: 20140331
  Receipt Date: 20140331
  Transmission Date: 20141002
  Serious: No
  Sender: FDA-Public Use
  Company Number: US-009507513-1403USA010048

PATIENT
  Age: 30 Year
  Sex: Female
  Weight: 61.22 kg

DRUGS (2)
  1. NUVARING [Suspect]
     Indication: CONTRACEPTION
     Dosage: 3 WEEKS IN 1 WEEK REMOVAL
     Route: 067
     Dates: start: 20140223
  2. MOTRIN [Concomitant]
     Indication: MUSCLE SPASMS

REACTIONS (6)
  - Crying [Unknown]
  - Anger [Unknown]
  - Apathy [Unknown]
  - Depressed mood [Unknown]
  - Fatigue [Unknown]
  - Mood swings [Unknown]
